FAERS Safety Report 5070113-2 (Version None)
Quarter: 2006Q3

REPORT INFORMATION
  Report Type: 
  Country: None (occurrence: None)
  Receive Date: 20060731
  Receipt Date: 20060718
  Transmission Date: 20061208
  Serious: Yes (Other)
  Sender: FDA-Public Use
  Company Number: 2006089967

PATIENT
  Sex: Female

DRUGS (2)
  1. AROMASIN [Suspect]
     Indication: DRUG USE FOR UNKNOWN INDICATION
  2. CLODRONATE DISODIUM           (CLODRONATE DISODIUM) [Suspect]
     Indication: DRUG USE FOR UNKNOWN INDICATION

REACTIONS (2)
  - ALVEOLITIS ALLERGIC [None]
  - PULMONARY GRANULOMA [None]
